FAERS Safety Report 6125486-6 (Version None)
Quarter: 2009Q1

REPORT INFORMATION
  Report Type: 
  Country: None (occurrence: None)
  Receive Date: 20090318
  Receipt Date: 20090313
  Transmission Date: 20090719
  Serious: Yes (Hospitalization)
  Sender: FDA-Public Use
  Company Number: GXKR2009DE03158

PATIENT
  Age: 71 Year
  Sex: Female

DRUGS (6)
  1. PREDNISOLONE [Suspect]
     Dosage: 10 MG, QD, ORAL
     Route: 048
     Dates: start: 20081107
  2. BISOPROLOL FUMARATE [Concomitant]
  3. CALCILAC KT (CALCIUM CARBONATE, COLECALCIFEROL) [Concomitant]
  4. LERCANIDIPINE [Concomitant]
  5. RAMIPRIL [Concomitant]
  6. FENTANYL-100 [Concomitant]

REACTIONS (1)
  - DIABETES MELLITUS [None]
